FAERS Safety Report 24732347 (Version 1)
Quarter: 2024Q4

REPORT INFORMATION
  Report Type: Spontaneous
  Country: RU (occurrence: RU)
  Receive Date: 20241213
  Receipt Date: 20241213
  Transmission Date: 20250115
  Serious: Yes (Hospitalization)
  Sender: RANBAXY
  Company Number: RU-SUN PHARMACEUTICAL INDUSTRIES LTD-2024R1-482427

PATIENT
  Age: 44 Year

DRUGS (2)
  1. OMEPRAZOLE [Suspect]
     Active Substance: OMEPRAZOLE
     Indication: Pancreatitis acute
     Dosage: 40 MILLIGRAM, BID
     Route: 042
  2. KETOPROFEN [Suspect]
     Active Substance: KETOPROFEN
     Indication: Pancreatitis acute
     Dosage: 100 MILLIGRAM, AS NEEDED
     Route: 042

REACTIONS (1)
  - Condition aggravated [Unknown]
